FAERS Safety Report 7476875-9 (Version None)
Quarter: 2011Q2

REPORT INFORMATION
  Report Type: 
  Country: None (occurrence: None)
  Receive Date: 20110512
  Receipt Date: 20100124
  Transmission Date: 20111010
  Serious: Yes (Death, Other)
  Sender: FDA-Public Use
  Company Number: US-BAYER-201012027NA

PATIENT
  Age: 34 Year
  Sex: Male
  Weight: 91 kg

DRUGS (20)
  1. TRASYLOL [Suspect]
     Indication: STERNOTOMY
     Dosage: 400ML OVER 25 MINUTES
     Route: 042
     Dates: start: 20071213, end: 20071213
  2. HEPARIN [Concomitant]
     Indication: PRODUCT USED FOR UNKNOWN INDICATION
     Dosage: 43000 U, UNK
     Route: 042
     Dates: start: 20071213
  3. HEPARIN [Concomitant]
     Dosage: 10,000 PRIME
     Route: 042
     Dates: start: 20071213
  4. ZOLOFT [Concomitant]
     Indication: PRODUCT USED FOR UNKNOWN INDICATION
  5. VANCOMYCIN [Concomitant]
     Indication: PREOPERATIVE CARE
     Dosage: 1 G, UNK
     Route: 042
     Dates: start: 20071213
  6. INSULIN [INSULIN] [Concomitant]
     Indication: PRODUCT USED FOR UNKNOWN INDICATION
     Dosage: UNK
     Route: 042
     Dates: start: 20071213
  7. SODIUM BICARBONATE [Concomitant]
     Dosage: 50 ML PRIME
     Route: 042
     Dates: start: 20071213
  8. LISINOPRIL [Concomitant]
     Indication: PRODUCT USED FOR UNKNOWN INDICATION
  9. HEPARIN [Concomitant]
  10. TRASYLOL [Suspect]
     Indication: AORTIC VALVE REPLACEMENT
     Dosage: 200ML CARDIOPULMONARY BYPASS PRIME
     Route: 042
     Dates: start: 20070213, end: 20071213
  11. CLONIDINE [Concomitant]
     Indication: PRODUCT USED FOR UNKNOWN INDICATION
  12. VERSED [Concomitant]
     Indication: PRODUCT USED FOR UNKNOWN INDICATION
     Dosage: CONTINUOUS DRIP
     Route: 042
     Dates: start: 20071213
  13. AMICAR [Concomitant]
     Indication: PRODUCT USED FOR UNKNOWN INDICATION
     Dosage: 7
     Route: 042
     Dates: start: 20071213
  14. TRASYLOL [Suspect]
     Dosage: 50 ML/HR
     Route: 042
     Dates: start: 20071213, end: 20071213
  15. ESMOLOL [Concomitant]
     Indication: PRODUCT USED FOR UNKNOWN INDICATION
     Dosage: UNK
     Route: 042
     Dates: start: 20071213
  16. RED BLOOD CELLS [Concomitant]
  17. TOPROL-XL [Concomitant]
     Indication: PRODUCT USED FOR UNKNOWN INDICATION
  18. NEOSYNEPHRINE FAURE [Concomitant]
     Indication: PRODUCT USED FOR UNKNOWN INDICATION
     Dosage: UNK
     Route: 042
     Dates: start: 20071213
  19. PROTAMINE SULFATE [Concomitant]
     Indication: PRODUCT USED FOR UNKNOWN INDICATION
     Dosage: 400 MG, UNK
     Route: 042
     Dates: start: 20071213
  20. PLATELETS [Concomitant]

REACTIONS (12)
  - DEATH [None]
  - MULTI-ORGAN FAILURE [None]
  - RENAL INJURY [None]
  - PAIN [None]
  - INJURY [None]
  - ANXIETY [None]
  - EMOTIONAL DISTRESS [None]
  - UNEVALUABLE EVENT [None]
  - RENAL FAILURE [None]
  - RENAL IMPAIRMENT [None]
  - STRESS [None]
  - FEAR [None]
